FAERS Safety Report 24634578 (Version 1)
Quarter: 2024Q4

REPORT INFORMATION
  Report Type: Report from Study
  Country: US (occurrence: US)
  Receive Date: 20241119
  Receipt Date: 20241119
  Transmission Date: 20250115
  Serious: Yes (Hospitalization, Other)
  Sender: JOHNSON AND JOHNSON
  Company Number: US-JNJFOC-20241130650

PATIENT
  Age: 5 Decade
  Sex: Female

DRUGS (5)
  1. SPRAVATO [Suspect]
     Active Substance: ESKETAMINE
     Indication: Depression
     Dosage: ^84 MG, 2 TOTAL DOSES^
     Route: 045
     Dates: start: 20240223, end: 20240229
  2. SPRAVATO [Suspect]
     Active Substance: ESKETAMINE
     Dosage: ^98 MG, 1 TOTAL DOSE^
     Route: 045
     Dates: start: 20240308, end: 20240308
  3. SPRAVATO [Suspect]
     Active Substance: ESKETAMINE
     Dosage: ^112 MG, 5 TOTAL DOSES^
     Route: 045
     Dates: start: 20240314, end: 20240411
  4. SPRAVATO [Suspect]
     Active Substance: ESKETAMINE
     Dosage: ^84 MG, 3 TOTAL DOSES^
     Route: 045
     Dates: start: 20240418, end: 20240515
  5. SPRAVATO [Suspect]
     Active Substance: ESKETAMINE
     Dosage: ^112 MG, 8 TOTAL DOSES^
     Route: 045
     Dates: start: 20240523, end: 20240905

REACTIONS (1)
  - Hospitalisation [Unknown]

NARRATIVE: CASE EVENT DATE: 20240101
